FAERS Safety Report 6342579-9 (Version None)
Quarter: 2009Q3

REPORT INFORMATION
  Report Type: 
  Country: None (occurrence: None)
  Receive Date: 20090908
  Receipt Date: 20090828
  Transmission Date: 20100115
  Serious: Yes (Hospitalization, Other)
  Sender: FDA-Public Use
  Company Number: JP-JNJFOC-20090804399

PATIENT
  Age: 39 Year
  Sex: Female

DRUGS (1)
  1. DOXORUBICIN HCL [Suspect]
     Indication: OVARIAN CANCER RECURRENT
     Dosage: 3 CYCLES
     Route: 042

REACTIONS (2)
  - CHROMATURIA [None]
  - GASTROINTESTINAL HAEMORRHAGE [None]
